FAERS Safety Report 13491749 (Version 2)
Quarter: 2017Q3

REPORT INFORMATION
  Report Type: Report from Study
  Country: GB (occurrence: GB)
  Receive Date: 20170427
  Receipt Date: 20170706
  Transmission Date: 20171127
  Serious: Yes (Other)
  Sender: FDA-Public Use
  Company Number: GB-SA-2017SA039086

PATIENT
  Age: 71 Year
  Sex: Male

DRUGS (2)
  1. OXALIPLATIN. [Concomitant]
     Active Substance: OXALIPLATIN
  2. PLERIXAFOR [Suspect]
     Active Substance: PLERIXAFOR
     Indication: ADENOCARCINOMA
     Route: 042
     Dates: start: 20170306, end: 20170311

REACTIONS (3)
  - Ventricular arrhythmia [Recovered/Resolved]
  - Embolism [Not Recovered/Not Resolved]
  - Paraesthesia [Recovered/Resolved]

NARRATIVE: CASE EVENT DATE: 20170307
